FAERS Safety Report 17683975 (Version 1)
Quarter: 2020Q2

REPORT INFORMATION
  Report Type: Spontaneous
  Country: US (occurrence: US)
  Receive Date: 20200417
  Receipt Date: 20200417
  Transmission Date: 20200714
  Serious: Yes (Hospitalization)
  Sender: FDA-Public Use
  Company Number: None

PATIENT
  Age: 73 Year
  Sex: Male
  Weight: 103 kg

DRUGS (1)
  1. OCRELIZUMAB. [Suspect]
     Active Substance: OCRELIZUMAB
     Indication: MULTIPLE SCLEROSIS
     Dosage: ?          OTHER FREQUENCY:6 MONTHS;?
     Route: 042

REACTIONS (3)
  - Oesophageal candidiasis [None]
  - Cytomegalovirus oesophagitis [None]
  - Necrotising oesophagitis [None]

NARRATIVE: CASE EVENT DATE: 20191028
